FAERS Safety Report 9735591 (Version 1)
Quarter: 2013Q4

REPORT INFORMATION
  Report Type: Spontaneous
  Country: GB (occurrence: GB)
  Receive Date: 20131206
  Receipt Date: 20131206
  Transmission Date: 20140711
  Serious: Yes (Other)
  Sender: FDA-Public Use
  Company Number: GB-PFIZER INC-2013348676

PATIENT
  Age: 17 Year
  Sex: Male
  Weight: 70 kg

DRUGS (3)
  1. PHENYTOIN [Suspect]
     Indication: BRAIN ABSCESS
     Dosage: 400 MG, UNK
     Route: 048
     Dates: start: 201310
  2. LENOGRASTIM [Concomitant]
     Dosage: 263 MG, UNK
     Route: 058
     Dates: start: 201310
  3. CIPROFLOXACIN [Concomitant]
     Dosage: 500 MG, 2X/DAY
     Route: 048
     Dates: start: 201310

REACTIONS (1)
  - Neutropenia [Recovered/Resolved]
